FAERS Safety Report 10156188 (Version 1)
Quarter: 2014Q2

REPORT INFORMATION
  Report Type: Spontaneous
  Country: US (occurrence: US)
  Receive Date: 20140506
  Receipt Date: 20140506
  Transmission Date: 20141212
  Serious: No
  Sender: FDA-Public Use
  Company Number: US-009507513-2012SP011538

PATIENT
  Age: 5 Year
  Sex: Male
  Weight: 18.14 kg

DRUGS (2)
  1. CLARITIN ORAL SOLUTION [Suspect]
     Indication: HYPERSENSITIVITY
     Dosage: 7.5 MG, QAM
     Route: 048
  2. CLARITIN ORAL SOLUTION [Suspect]
     Dosage: 15 MG, ONCE
     Route: 048

REACTIONS (1)
  - Overdose [Unknown]
